FAERS Safety Report 7717601-5 (Version None)
Quarter: 2011Q3

REPORT INFORMATION
  Report Type: 
  Country: None (occurrence: None)
  Receive Date: 20110824
  Receipt Date: 20110818
  Transmission Date: 20111222
  Serious: Yes (Other)
  Sender: FDA-Public Use
  Company Number: ACO_26230_2011

PATIENT
  Age: 82 Year
  Sex: Male

DRUGS (1)
  1. AMPYRA [Suspect]
     Indication: GAIT DISTURBANCE
     Dosage: 10 MG, Q 12 HRS, ORAL
     Route: 048
     Dates: start: 20110506, end: 20110701

REACTIONS (4)
  - DEMENTIA [None]
  - CONFUSIONAL STATE [None]
  - MULTIPLE FRACTURES [None]
  - FALL [None]
